APPROVED DRUG PRODUCT: RISPERDAL
Active Ingredient: RISPERIDONE
Strength: 1MG/ML
Dosage Form/Route: SOLUTION;ORAL
Application: N020588 | Product #001 | TE Code: AA
Applicant: JANSSEN PHARMACEUTICALS INC
Approved: Jun 10, 1996 | RLD: Yes | RS: Yes | Type: RX